FAERS Safety Report 21744058 (Version 1)
Quarter: 2022Q4

REPORT INFORMATION
  Report Type: Spontaneous
  Country: None (occurrence: US)
  Receive Date: 20221217
  Receipt Date: 20221217
  Transmission Date: 20230113
  Serious: No
  Sender: FDA-Public Use
  Company Number: US-Intersect Ent, Inc.-2135943

PATIENT
  Age: 72 Year
  Sex: Female

DRUGS (1)
  1. SINUVA [Suspect]
     Active Substance: MOMETASONE FUROATE
     Indication: Nasal polyps
     Route: 006
     Dates: start: 20220804

REACTIONS (4)
  - Nasal crusting [Not Recovered/Not Resolved]
  - Rhinorrhoea [Not Recovered/Not Resolved]
  - Upper-airway cough syndrome [Not Recovered/Not Resolved]
  - Facial discomfort [Not Recovered/Not Resolved]

NARRATIVE: CASE EVENT DATE: 20220916
